FAERS Safety Report 11141110 (Version 1)
Quarter: 2015Q2

REPORT INFORMATION
  Report Type: Report from Study
  Country: GB (occurrence: GB)
  Receive Date: 20150527
  Receipt Date: 20150527
  Transmission Date: 20150821
  Serious: Yes (Hospitalization)
  Sender: FDA-Public Use
  Company Number: GB-GLAXOSMITHKLINE-GB2015GSK071380

PATIENT
  Sex: Male
  Weight: 109 kg

DRUGS (4)
  1. EPIRUBICIN [Suspect]
     Active Substance: EPIRUBICIN
     Indication: ADENOCARCINOMA
     Dosage: 100 MG
     Route: 042
     Dates: start: 20150323
  2. CAPECITABINE. [Suspect]
     Active Substance: CAPECITABINE
     Indication: ADENOCARCINOMA
     Dosage: 4200 MG
     Route: 048
     Dates: start: 20150323
  3. CISPLATIN. [Suspect]
     Active Substance: CISPLATIN
     Indication: ADENOCARCINOMA
     Dosage: 1200 MG
     Route: 042
     Dates: start: 20150323
  4. TYKERB [Suspect]
     Active Substance: LAPATINIB DITOSYLATE
     Indication: ADENOCARCINOMA
     Dosage: 12.5 MG
     Route: 048
     Dates: start: 20150222

REACTIONS (2)
  - Dizziness [Not Recovered/Not Resolved]
  - Nausea [Not Recovered/Not Resolved]

NARRATIVE: CASE EVENT DATE: 20150513
